FAERS Safety Report 23463207 (Version 1)
Quarter: 2024Q1

REPORT INFORMATION
  Report Type: Spontaneous
  Country: US (occurrence: US)
  Receive Date: 20240131
  Receipt Date: 20240131
  Transmission Date: 20240409
  Serious: No
  Sender: FDA-Public Use
  Company Number: US-009507513-2401USA014827

PATIENT
  Age: 68 Year
  Sex: Female

DRUGS (1)
  1. DIFICID [Suspect]
     Active Substance: FIDAXOMICIN
     Dosage: 200 MILLIGRAM, BID
     Route: 048

REACTIONS (3)
  - Abdominal pain lower [Unknown]
  - Flatulence [Unknown]
  - Product prescribing issue [Unknown]
